FAERS Safety Report 5708398-9 (Version None)
Quarter: 2008Q2

REPORT INFORMATION
  Report Type: 
  Country: None (occurrence: None)
  Receive Date: 20080417
  Receipt Date: 20080409
  Transmission Date: 20081010
  Serious: Yes (Hospitalization)
  Sender: FDA-Public Use
  Company Number: US-ELI_LILLY_AND_COMPANY-US200804002394

PATIENT
  Sex: Female

DRUGS (3)
  1. BYETTA [Suspect]
     Dosage: 10 UG, 2/D
     Route: 058
     Dates: start: 20061001
  2. GLYBURIDE [Concomitant]
     Dosage: 5 MG, 2/D
     Route: 048
  3. NOVOLIN R [Concomitant]
     Dosage: UNK, DAILY (1/D)
     Route: 058

REACTIONS (1)
  - HOSPITALISATION [None]
